FAERS Safety Report 16007837 (Version 1)
Quarter: 2019Q1

REPORT INFORMATION
  Report Type: Report from Study
  Country: CO (occurrence: CO)
  Receive Date: 20190226
  Receipt Date: 20190226
  Transmission Date: 20190418
  Serious: Yes (Hospitalization)
  Sender: FDA-Public Use
  Company Number: CO-JNJFOC-20190228600

PATIENT
  Age: 22 Year
  Sex: Male
  Weight: 86 kg

DRUGS (1)
  1. RISPERDAL CONSTA [Suspect]
     Active Substance: RISPERIDONE
     Indication: SCHIZOPHRENIA
     Route: 030
     Dates: start: 20180207

REACTIONS (1)
  - Stress [Not Recovered/Not Resolved]

NARRATIVE: CASE EVENT DATE: 201901
